FAERS Safety Report 14999765 (Version 1)
Quarter: 2018Q2

REPORT INFORMATION
  Report Type: Report from Study
  Country: CO (occurrence: CO)
  Receive Date: 20180612
  Receipt Date: 20180612
  Transmission Date: 20180711
  Serious: Yes (Hospitalization)
  Sender: FDA-Public Use
  Company Number: PHHY2018CO009560

PATIENT
  Sex: Female
  Weight: 46 kg

DRUGS (7)
  1. XOLAIR [Suspect]
     Active Substance: OMALIZUMAB
     Dosage: 600 MG, UNK
     Route: 058
     Dates: start: 20180509
  2. XOLAIR [Suspect]
     Active Substance: OMALIZUMAB
     Indication: ASTHMA
     Dosage: 600 MG (2 AMPOULES), BIW (EVERY 15 DAYS)
     Route: 058
     Dates: start: 201607, end: 20170920
  3. MONTELUKAST SODIUM. [Suspect]
     Active Substance: MONTELUKAST SODIUM
     Indication: PRODUCT USED FOR UNKNOWN INDICATION
     Dosage: 10 MG, Q12H
     Route: 065
  4. XOLAIR [Suspect]
     Active Substance: OMALIZUMAB
     Dosage: (EVERY 15 DAYS), HALF DOSE
     Route: 058
     Dates: start: 201804
  5. SALBUTAMOL [Concomitant]
     Active Substance: ALBUTEROL
     Indication: PRODUCT USED FOR UNKNOWN INDICATION
     Route: 065
  6. XOLAIR [Suspect]
     Active Substance: OMALIZUMAB
     Dosage: (EVERY 15 DAYS), HALF DOSE
     Route: 058
     Dates: start: 201803
  7. XOLAIR [Suspect]
     Active Substance: OMALIZUMAB
     Dosage: 600 MG, UNK
     Route: 058
     Dates: start: 20180524

REACTIONS (11)
  - Choking [Not Recovered/Not Resolved]
  - Headache [Not Recovered/Not Resolved]
  - Sleep apnoea syndrome [Unknown]
  - Drug ineffective [Unknown]
  - Oxygen saturation decreased [Not Recovered/Not Resolved]
  - Asthma [Unknown]
  - Dyspnoea [Unknown]
  - Therapeutic response decreased [Unknown]
  - Spirometry abnormal [Unknown]
  - Incorrect dose administered [Unknown]
  - Blood test abnormal [Unknown]

NARRATIVE: CASE EVENT DATE: 2017
